FAERS Safety Report 11152257 (Version 1)
Quarter: 2015Q2

REPORT INFORMATION
  Report Type: Spontaneous
  Country: US (occurrence: None)
  Receive Date: 20150529
  Receipt Date: 20150529
  Transmission Date: 20150821
  Serious: Yes (Life-Threatening, Hospitalization)
  Sender: FDA-Public Use
  Company Number: None

PATIENT
  Age: 88 Year
  Sex: Male
  Weight: 181 kg

DRUGS (11)
  1. ALBUTEROL INHALER HFA (PROVENTIL, VENTOLIN) [Concomitant]
  2. BECLOMETHASONE (QVAR) [Concomitant]
  3. ATENOLOL (TENORIM) [Concomitant]
  4. METFORMIN (GLUCOPHAGE) [Concomitant]
  5. LASIX [Concomitant]
     Active Substance: FUROSEMIDE
  6. TAMSULOSION (FLOMAX) [Concomitant]
  7. ACETAMINOPHEN. [Concomitant]
     Active Substance: ACETAMINOPHEN
  8. ELIQUIS [Suspect]
     Active Substance: APIXABAN
     Indication: ATRIAL FIBRILLATION
     Route: 048
  9. ALBUTEROL-IPRATROPIUM (DUONEB) [Concomitant]
  10. DOCUSATE (COLACE) [Concomitant]
  11. ZOLOFT [Concomitant]
     Active Substance: SERTRALINE HYDROCHLORIDE

REACTIONS (2)
  - Haematoma [None]
  - Incorrect dose administered [None]

NARRATIVE: CASE EVENT DATE: 20150501
